FAERS Safety Report 4811740-4 (Version None)
Quarter: 2005Q4

REPORT INFORMATION
  Report Type: 
  Country: None (occurrence: None)
  Receive Date: 20051025
  Receipt Date: 20051019
  Transmission Date: 20060501
  Serious: Yes (Death)
  Sender: FDA-Public Use
  Company Number: USA-2005-0021460

PATIENT
  Age: 65 Year
  Sex: Female

DRUGS (11)
  1. OXYCONTIN [Suspect]
     Indication: LUMBAR RADICULOPATHY
     Dosage: 80 MG, TID
  2. LASIX [Concomitant]
  3. LIPITOR [Concomitant]
  4. PACERONE [Concomitant]
  5. COUMADIN [Concomitant]
  6. METOPROLOL TARTRATE [Concomitant]
  7. K-DUR 10 [Concomitant]
  8. VITAMIN B12 [Concomitant]
  9. ZOLOFT [Concomitant]
  10. MIRALAX [Concomitant]
  11. OXYGEN (OXYGEN) [Concomitant]

REACTIONS (1)
  - DEATH [None]
